FAERS Safety Report 4567346-8 (Version None)
Quarter: 2005Q1

REPORT INFORMATION
  Report Type: 
  Country: None (occurrence: None)
  Receive Date: 20050127
  Receipt Date: 20050124
  Transmission Date: 20050727
  Serious: Yes (Death, Hospitalization)
  Sender: FDA-Public Use
  Company Number: TAP2004Q01642

PATIENT
  Age: 76 Year
  Sex: Female
  Weight: 63.9572 kg

DRUGS (5)
  1. PREVACID [Suspect]
     Indication: GASTROOESOPHAGEAL REFLUX DISEASE
     Dosage: 30 MG, 1 IN 1 D, PER ORAL
     Route: 048
     Dates: start: 20041012, end: 20040101
  2. PRILOSEC [Suspect]
     Indication: GASTROOESOPHAGEAL REFLUX DISEASE
     Dates: start: 20040101
  3. LITHIUM [Concomitant]
  4. ACETYLSALICYLIC ACID SRT [Concomitant]
  5. ACTONEL [Concomitant]

REACTIONS (2)
  - HEPATITIS B [None]
  - LETHARGY [None]
